FAERS Safety Report 7981592 (Version 2)
Quarter: 2013Q1

REPORT INFORMATION
  Report Type: Report from Study
  Country: NZ (occurrence: NZ)
  Receive Date: 20110608
  Receipt Date: 20130322
  Transmission Date: 20140127
  Serious: Yes (Death, Hospitalization)
  Sender: FDA-Public Use
  Company Number: PHHO2006NZ13943

PATIENT
  Sex: Female

DRUGS (5)
  1. CLOZARIL (CLOZAPINE) [Suspect]
     Indication: SCHIZOPHRENIA
     Dosage: UNK
     Dates: start: 20040212
  2. CLOZARIL (CLOZAPINE) [Suspect]
     Dosage: 300 MG, (100 MG IN MORNING AND 200 MG NOCTE)
     Dates: start: 20040412
  3. GLIPIZIDE [Concomitant]
     Indication: TYPE 2 DIABETES MELLITUS
     Dosage: 10 MG, BID
     Route: 048
  4. CODEINE [Concomitant]
     Indication: PAIN
     Dosage: 30 MG, BID
  5. COMBIVENT [Concomitant]
     Indication: CHRONIC OBSTRUCTIVE PULMONARY DISEASE
     Dosage: 2 PUFFS

REACTIONS (3)
  - Pneumonia bacterial [Fatal]
  - Antipsychotic drug level increased [Unknown]
  - Neutrophil count increased [Unknown]
